FAERS Safety Report 6994282-X (Version None)
Quarter: 2010Q3

REPORT INFORMATION
  Report Type: 
  Country: None (occurrence: None)
  Receive Date: 20100917
  Receipt Date: 20100907
  Transmission Date: 20110219
  Serious: Yes (Other)
  Sender: FDA-Public Use
  Company Number: CH-ELI_LILLY_AND_COMPANY-CH201009002380

PATIENT
  Age: 29 Year
  Sex: Female

DRUGS (1)
  1. FLUCTINE [Suspect]
     Indication: PANIC DISORDER WITHOUT AGORAPHOBIA
     Dosage: 40 MG, DAILY (1/D)
     Route: 065
     Dates: start: 20090701, end: 20100710

REACTIONS (1)
  - DRUG EXPOSURE DURING PREGNANCY [None]
